FAERS Safety Report 9477786 (Version 1)
Quarter: 2013Q3

REPORT INFORMATION
  Report Type: Spontaneous
  Country: FR (occurrence: FR)
  Receive Date: 20130827
  Receipt Date: 20130827
  Transmission Date: 20140515
  Serious: Yes (Hospitalization)
  Sender: FDA-Public Use
  Company Number: FR-ASTRAZENECA-2013SE64216

PATIENT
  Age: 24189 Day
  Sex: Female

DRUGS (3)
  1. ARIMIDEX [Suspect]
     Route: 048
     Dates: start: 2012, end: 20130719
  2. INEGY [Suspect]
     Dosage: 10 MG/20 MG ONE DF PER DAY
     Route: 048
     Dates: end: 20130719
  3. LEVOTHYROX [Concomitant]

REACTIONS (1)
  - Thrombotic thrombocytopenic purpura [Not Recovered/Not Resolved]
